FAERS Safety Report 5392987-8 (Version None)
Quarter: 2007Q3

REPORT INFORMATION
  Report Type: 
  Country: None (occurrence: None)
  Receive Date: 20070719
  Receipt Date: 20070711
  Transmission Date: 20080115
  Serious: Yes (Hospitalization)
  Sender: FDA-Public Use
  Company Number: OMPQ-PR-0706S-0584

PATIENT
  Age: 70 Year
  Sex: Female

DRUGS (1)
  1. OMNIPAQUE 140 [Suspect]
     Indication: PULMONARY EMBOLISM
     Dosage: 75-100 ML, SINGLE DOSE
     Dates: start: 20070626, end: 20070626

REACTIONS (2)
  - BLISTER [None]
  - COMPARTMENT SYNDROME [None]
